FAERS Safety Report 20900626 (Version 1)
Quarter: 2022Q2

REPORT INFORMATION
  Report Type: Spontaneous
  Country: US (occurrence: None)
  Receive Date: 20220531
  Receipt Date: 20220531
  Transmission Date: 20220721
  Serious: No
  Sender: FDA-Public Use
  Company Number: None

PATIENT
  Age: 56 Year
  Sex: Female
  Weight: 114.75 kg

DRUGS (25)
  1. ROSUVASTATIN [Suspect]
     Active Substance: ROSUVASTATIN
     Indication: Blood cholesterol increased
     Dosage: OTHER QUANTITY : 1 TABLET(S);?FREQUENCY : AT BEDTIME;?
     Route: 048
     Dates: start: 20191006
  2. PRAVACHOL [Suspect]
     Active Substance: PRAVASTATIN SODIUM
     Indication: Blood cholesterol increased
  3. MICARDIS [Concomitant]
     Active Substance: TELMISARTAN
  4. NOVOLOG [Concomitant]
     Active Substance: INSULIN ASPART
  5. INSULIN PUM [Concomitant]
  6. METFORMIN [Concomitant]
     Active Substance: METFORMIN HYDROCHLORIDE
  7. TEGRETOL [Concomitant]
     Active Substance: CARBAMAZEPINE
  8. VITAMIN D [Concomitant]
     Active Substance: VITAMIN D NOS
  9. PANTOPRAZOLE [Concomitant]
     Active Substance: PANTOPRAZOLE
  10. MACRODANTIN [Concomitant]
     Active Substance: NITROFURANTOIN
  11. AMITRIPTYLINE [Concomitant]
     Active Substance: AMITRIPTYLINE
  12. CRESTOR [Concomitant]
     Active Substance: ROSUVASTATIN CALCIUM
  13. FLECTOR [Concomitant]
     Active Substance: DICLOFENAC EPOLAMINE
  14. LIDOCAINE PATCH [Concomitant]
     Active Substance: LIDOCAINE
  15. PIMECROLIMUS [Concomitant]
     Active Substance: PIMECROLIMUS
  16. TEMAZEPAM [Concomitant]
     Active Substance: TEMAZEPAM
  17. AZELASTINE HYDROCHLORIDE [Concomitant]
     Active Substance: AZELASTINE HYDROCHLORIDE
  18. PREDNISONE [Concomitant]
     Active Substance: PREDNISONE
  19. XANAX [Concomitant]
     Active Substance: ALPRAZOLAM
  20. METAMUCIL [Concomitant]
     Active Substance: PLANTAGO SEED
  21. VITAMINS [Concomitant]
     Active Substance: VITAMINS
  22. PROBIOTICS NOS [Concomitant]
     Active Substance: PROBIOTICS NOS
  23. FAMOTIDINE [Concomitant]
     Active Substance: FAMOTIDINE
  24. VOLTAREN [Concomitant]
     Active Substance: DICLOFENAC SODIUM
  25. FLONASE [Concomitant]
     Active Substance: FLUTICASONE PROPIONATE

REACTIONS (3)
  - Breast pain [None]
  - Fibrocystic breast disease [None]
  - Therapy interrupted [None]

NARRATIVE: CASE EVENT DATE: 20220304
